FAERS Safety Report 16140026 (Version 1)
Quarter: 2019Q2

REPORT INFORMATION
  Report Type: Spontaneous
  Country: US (occurrence: US)
  Receive Date: 20190329
  Receipt Date: 20190329
  Transmission Date: 20190711
  Serious: Yes (Disabling, Other)
  Sender: FDA-Public Use
  Company Number: None

PATIENT
  Sex: Male
  Weight: 10.8 kg

DRUGS (1)
  1. TRIAMCINOLONE ACETONIDE OINMENT USP 0.1% [Suspect]
     Active Substance: TRIAMCINOLONE ACETONIDE
     Indication: ECZEMA
     Dosage: ?          QUANTITY:16 OUNCE(S);?
     Route: 061
     Dates: start: 20160513, end: 20180617

REACTIONS (4)
  - Hypothalamic pituitary adrenal axis suppression [None]
  - Withdrawal syndrome [None]
  - Drug dependence [None]
  - Off label use [None]
